FAERS Safety Report 11787666 (Version 1)
Quarter: 2015Q4

REPORT INFORMATION
  Report Type: Spontaneous
  Country: GB (occurrence: GB)
  Receive Date: 20151130
  Receipt Date: 20151130
  Transmission Date: 20160305
  Serious: Yes (Hospitalization)
  Sender: FDA-Public Use
  Company Number: GB-TEVA-610587ACC

PATIENT
  Age: 85 Year
  Sex: Male

DRUGS (5)
  1. LANSOPRAZOLE. [Suspect]
     Active Substance: LANSOPRAZOLE
     Dosage: 30 MILLIGRAM DAILY;
     Route: 048
  2. ASPIRIN. [Concomitant]
     Active Substance: ASPIRIN
  3. FINASTERIDE. [Concomitant]
     Active Substance: FINASTERIDE
  4. DIGOXIN. [Concomitant]
     Active Substance: DIGOXIN
  5. AMITRIPTYLINE [Suspect]
     Active Substance: AMITRIPTYLINE
     Dosage: 10 MILLIGRAM DAILY; AT NIGHT; DAILY DOSE: 10 MG
     Route: 048

REACTIONS (1)
  - Hyponatraemia [Not Recovered/Not Resolved]
